FAERS Safety Report 9746833 (Version 2)
Quarter: 2013Q4

REPORT INFORMATION
  Report Type: Spontaneous
  Country: US (occurrence: US)
  Receive Date: 20131211
  Receipt Date: 20131211
  Transmission Date: 20140711
  Serious: Yes (Hospitalization)
  Sender: FDA-Public Use
  Company Number: US-BAXTER-2013BAX047515

PATIENT
  Age: 32 Year
  Sex: Female

DRUGS (4)
  1. DIANEAL LOW CALCIUM [Suspect]
     Indication: PERITONEAL DIALYSIS
     Route: 033
     Dates: start: 20130808
  2. DIANEAL LOW CALCIUM [Suspect]
     Route: 033
     Dates: start: 20130808
  3. DIANEAL LOW CALCIUM [Suspect]
     Indication: PERITONEAL DIALYSIS
     Route: 033
     Dates: start: 20130808
  4. DIANEAL LOW CALCIUM [Suspect]
     Route: 033
     Dates: start: 20130808

REACTIONS (1)
  - Migraine [Recovered/Resolved]
